FAERS Safety Report 24728582 (Version 8)
Quarter: 2025Q1

REPORT INFORMATION
  Report Type: Spontaneous
  Country: CL (occurrence: CL)
  Receive Date: 20241212
  Receipt Date: 20250321
  Transmission Date: 20250408
  Serious: Yes (Hospitalization)
  Sender: BIOMARIN
  Company Number: CL-BIOMARINAP-CL-2024-162472

PATIENT

DRUGS (4)
  1. VIMIZIM [Suspect]
     Active Substance: ELOSULFASE ALFA
     Indication: Mucopolysaccharidosis IV
     Dosage: 2 MILLIGRAM/KILOGRAM, QW
     Route: 042
  2. VIMIZIM [Suspect]
     Active Substance: ELOSULFASE ALFA
     Route: 042
     Dates: start: 20230913
  3. VIMIZIM [Suspect]
     Active Substance: ELOSULFASE ALFA
     Dosage: 70 MILLIGRAM, QW
     Route: 042
  4. VIMIZIM [Suspect]
     Active Substance: ELOSULFASE ALFA
     Route: 042
     Dates: start: 20150415, end: 20230705

REACTIONS (4)
  - Seizure [Recovering/Resolving]
  - Neoplasm [Recovering/Resolving]
  - Endotracheal intubation complication [Recovering/Resolving]
  - Loss of personal independence in daily activities [Recovering/Resolving]

NARRATIVE: CASE EVENT DATE: 20241206
